FAERS Safety Report 8910109 (Version 3)
Quarter: 2013Q1

REPORT INFORMATION
  Report Type: Spontaneous
  Country: DE (occurrence: DE)
  Receive Date: 20121114
  Receipt Date: 20130314
  Transmission Date: 20140127
  Serious: Yes (Hospitalization, Other)
  Sender: FDA-Public Use
  Company Number: DE-BAXTER-2012BAX023081

PATIENT
  Age: 43 Year
  Sex: Female

DRUGS (7)
  1. ENDOXAN 1G [Suspect]
     Indication: BREAST CANCER
     Route: 042
     Dates: start: 20120823
  2. ENDOXAN 1G [Suspect]
     Route: 042
     Dates: start: 20120913
  3. ENDOXAN 1G [Suspect]
     Route: 042
     Dates: start: 20121004, end: 20121004
  4. EPIRUBICIN [Suspect]
     Indication: BREAST CANCER
     Route: 042
     Dates: start: 20120823
  5. EPIRUBICIN [Suspect]
     Route: 042
     Dates: start: 20120913
  6. EPIRUBICIN [Suspect]
     Route: 042
     Dates: start: 20121004, end: 20121004
  7. BELOC ZOK [Concomitant]
     Indication: PRODUCT USED FOR UNKNOWN INDICATION
     Route: 048

REACTIONS (3)
  - Partial seizures [Recovered/Resolved]
  - Epilepsy [Recovered/Resolved]
  - Tachycardia [Recovered/Resolved]
